FAERS Safety Report 4486598-6 (Version None)
Quarter: 2004Q4

REPORT INFORMATION
  Report Type: 
  Country: None (occurrence: None)
  Receive Date: 20041027
  Receipt Date: 20041014
  Transmission Date: 20050328
  Serious: Yes (Other)
  Sender: FDA-Public Use
  Company Number: PHBS2004JP13671

PATIENT
  Age: 76 Year
  Sex: Female

DRUGS (7)
  1. IMATINIB [Suspect]
     Indication: CHRONIC MYELOID LEUKAEMIA
     Dosage: 400 MG/D
     Route: 048
     Dates: start: 20011001
  2. IMATINIB [Suspect]
     Dosage: 500 MG/D
     Route: 048
  3. IMATINIB [Suspect]
     Dosage: 200 MG/D
     Route: 048
  4. IMATINIB [Suspect]
     Dosage: 400 MG/D
     Route: 048
  5. IMATINIB [Suspect]
     Dosage: 600 MG/D
     Route: 048
  6. IMATINIB [Suspect]
     Dosage: 100 MG/D
     Route: 048
     Dates: end: 20030601
  7. CYTARABINE [Concomitant]
     Dosage: 30 MG/D
     Route: 058

REACTIONS (9)
  - BLOOD CREATININE INCREASED [None]
  - BLOOD UREA INCREASED [None]
  - CHROMOSOMAL MUTATION [None]
  - DRUG RESISTANCE [None]
  - NORMOCHROMIC NORMOCYTIC ANAEMIA [None]
  - PLATELET COUNT INCREASED [None]
  - PLEURAL EFFUSION [None]
  - PROTEINURIA [None]
  - WHITE BLOOD CELL COUNT INCREASED [None]
